FAERS Safety Report 24537952 (Version 2)
Quarter: 2025Q3

REPORT INFORMATION
  Report Type: Report from Study
  Country: US (occurrence: US)
  Receive Date: 20241023
  Receipt Date: 20250809
  Transmission Date: 20251021
  Serious: Yes (Other)
  Sender: ALEXION PHARMACEUTICALS
  Company Number: US-AstraZeneca-CH-00724596A

PATIENT
  Sex: Male

DRUGS (1)
  1. SYMBICORT [Suspect]
     Active Substance: BUDESONIDE\FORMOTEROL FUMARATE DIHYDRATE

REACTIONS (20)
  - Cough [Unknown]
  - Dyspnoea [Unknown]
  - Wheezing [Unknown]
  - Chest discomfort [Unknown]
  - Fatigue [Unknown]
  - Malaise [Unknown]
  - Depression [Unknown]
  - Feeling of despair [Unknown]
  - Chronic obstructive pulmonary disease [Unknown]
  - Emotional disorder [Unknown]
  - Asthenia [Unknown]
  - Depressed mood [Unknown]
  - Abnormal loss of weight [Unknown]
  - Joint swelling [Unknown]
  - Peripheral swelling [Unknown]
  - Decreased activity [Unknown]
  - Condition aggravated [Unknown]
  - Productive cough [Unknown]
  - Sleep disorder [Unknown]
  - Intentional dose omission [Unknown]
